FAERS Safety Report 9921156 (Version 1)
Quarter: 2014Q1

REPORT INFORMATION
  Report Type: Spontaneous
  Country: US (occurrence: None)
  Receive Date: 20140221
  Receipt Date: 20140221
  Transmission Date: 20141002
  Serious: Yes (Death)
  Sender: FDA-Public Use
  Company Number: None

PATIENT
  Sex: Female

DRUGS (1)
  1. XELODA [Suspect]
     Indication: BREAST CANCER FEMALE
     Dosage: 3 TABS FOR 14 DAYS
     Route: 048
     Dates: start: 20131211, end: 20140117

REACTIONS (3)
  - Adverse event [None]
  - Malignant neoplasm progression [None]
  - Breast cancer female [None]
